APPROVED DRUG PRODUCT: FLUDEOXYGLUCOSE F18
Active Ingredient: FLUDEOXYGLUCOSE F-18
Strength: 20-300mCi/ML
Dosage Form/Route: INJECTABLE;INTRAVENOUS
Application: A203778 | Product #001 | TE Code: AP
Applicant: 3D IMAGING DRUG DESIGN AND DEVELOPMENT LLC
Approved: Oct 30, 2015 | RLD: No | RS: No | Type: RX